FAERS Safety Report 8014060-2 (Version None)
Quarter: 2011Q4

REPORT INFORMATION
  Report Type: 
  Country: None (occurrence: None)
  Receive Date: 20111229
  Receipt Date: 20111103
  Transmission Date: 20120403
  Serious: Yes (Death, Hospitalization, Other)
  Sender: FDA-Public Use
  Company Number: FI-ROCHE-1009974

PATIENT
  Sex: Female

DRUGS (32)
  1. CYCLOSPORINE [Concomitant]
     Indication: PRODUCT USED FOR UNKNOWN INDICATION
  2. FLUCONAZOLE [Concomitant]
     Indication: PRODUCT USED FOR UNKNOWN INDICATION
  3. EMGESAN [Concomitant]
     Indication: PRODUCT USED FOR UNKNOWN INDICATION
  4. VALTREX [Concomitant]
     Indication: PRODUCT USED FOR UNKNOWN INDICATION
  5. RATIOGRASTIM [Concomitant]
     Indication: PRODUCT USED FOR UNKNOWN INDICATION
  6. LANSOPRAZOLE [Concomitant]
     Indication: PRODUCT USED FOR UNKNOWN INDICATION
     Route: 048
  7. FLUDARABINE PHOSPHATE [Suspect]
     Indication: CHRONIC LYMPHOCYTIC LEUKAEMIA
  8. PREDNISONE TAB [Concomitant]
     Indication: PRODUCT USED FOR UNKNOWN INDICATION
     Route: 048
  9. NEULASTA [Concomitant]
     Indication: NEUTROPENIA
     Route: 058
  10. CEFTAZIDIME [Concomitant]
  11. RIBAVIRIN [Concomitant]
     Indication: COUGH
  12. ALEMTUZUMAB [Suspect]
     Indication: CHRONIC LYMPHOCYTIC LEUKAEMIA
  13. HYDROCORTISONE [Concomitant]
     Indication: PRODUCT USED FOR UNKNOWN INDICATION
     Route: 048
  14. GENSUMYCIN [Concomitant]
     Indication: PRODUCT USED FOR UNKNOWN INDICATION
  15. MABTHERA [Suspect]
     Indication: CHRONIC LYMPHOCYTIC LEUKAEMIA
     Route: 042
  16. DITRIM DUPLO [Concomitant]
     Indication: PRODUCT USED FOR UNKNOWN INDICATION
  17. MULTITABS [Concomitant]
     Indication: PRODUCT USED FOR UNKNOWN INDICATION
  18. CALCIUM CARBONATE [Concomitant]
     Indication: PRODUCT USED FOR UNKNOWN INDICATION
  19. CYCLOPHOSPHAMIDE [Suspect]
     Indication: CHRONIC LYMPHOCYTIC LEUKAEMIA
  20. VALCYTE [Suspect]
     Indication: CYTOMEGALOVIRUS INFECTION
     Route: 048
     Dates: start: 20100426
  21. FOSCAVIR [Suspect]
     Indication: CYTOMEGALOVIRUS INFECTION
  22. ADURSAL [Concomitant]
     Indication: PRODUCT USED FOR UNKNOWN INDICATION
  23. AVELOX [Concomitant]
     Indication: PRODUCT USED FOR UNKNOWN INDICATION
     Route: 048
  24. TENOX [Concomitant]
     Indication: PRODUCT USED FOR UNKNOWN INDICATION
  25. CEFTRIAXONE [Concomitant]
     Indication: PRODUCT USED FOR UNKNOWN INDICATION
  26. MYCOPHENOLATE MOFETIL (CELLCEPT) [Concomitant]
     Indication: PRODUCT USED FOR UNKNOWN INDICATION
  27. VITAMIN C [Concomitant]
     Indication: PRODUCT USED FOR UNKNOWN INDICATION
  28. CEFTAZIDIME [Concomitant]
     Indication: PRODUCT USED FOR UNKNOWN INDICATION
  29. MEDROL [Concomitant]
     Indication: PRODUCT USED FOR UNKNOWN INDICATION
     Route: 048
  30. PULMICORT [Concomitant]
     Indication: PRODUCT USED FOR UNKNOWN INDICATION
  31. ZITHROMAX [Concomitant]
     Indication: PRODUCT USED FOR UNKNOWN INDICATION
  32. DIFLUCAN [Concomitant]
     Indication: PRODUCT USED FOR UNKNOWN INDICATION
     Route: 042

REACTIONS (14)
  - CYTOMEGALOVIRUS INFECTION [None]
  - NEUTROPENIA [None]
  - ANAEMIA [None]
  - HERPES VIRUS INFECTION [None]
  - BLOOD CREATININE INCREASED [None]
  - STAPHYLOCOCCAL INFECTION [None]
  - SINUSITIS [None]
  - SOFT TISSUE NEOPLASM [None]
  - HEPATIC ENZYME INCREASED [None]
  - DIARRHOEA [None]
  - INTERSTITIAL LUNG DISEASE [None]
  - LEUKOPENIA [None]
  - THROMBOCYTOPENIA [None]
  - ASPERGILLOSIS [None]
